FAERS Safety Report 6153486-9 (Version None)
Quarter: 2009Q2

REPORT INFORMATION
  Report Type: 
  Country: None (occurrence: None)
  Receive Date: 20090413
  Receipt Date: 20080624
  Transmission Date: 20091009
  Serious: No
  Sender: FDA-Public Use
  Company Number: US-ABBOTT-08P-163-0459184-00

PATIENT
  Sex: Male

DRUGS (1)
  1. LUPRON [Suspect]
     Indication: PROSTATE CANCER
     Dosage: POSSIBLE LAST DOSE IN JUL 2008
     Route: 030
     Dates: start: 20070501

REACTIONS (2)
  - BONE DENSITY DECREASED [None]
  - MUSCULAR WEAKNESS [None]
